FAERS Safety Report 25854331 (Version 1)
Quarter: 2025Q3

REPORT INFORMATION
  Report Type: Spontaneous
  Country: EU (occurrence: EU)
  Receive Date: 20250927
  Receipt Date: 20250927
  Transmission Date: 20251021
  Serious: Yes (Death, Other)
  Sender: AMGEN
  Company Number: EU-AMGEN-ESPSP2025191230

PATIENT
  Age: 88 Year
  Sex: Male

DRUGS (1)
  1. APREMILAST [Suspect]
     Active Substance: APREMILAST
     Indication: Psoriasis
     Route: 065

REACTIONS (4)
  - Death [Fatal]
  - Cutaneous T-cell lymphoma [Unknown]
  - Chronic lymphocytic leukaemia [Unknown]
  - Therapy non-responder [Unknown]
